FAERS Safety Report 5295792-6 (Version None)
Quarter: 2007Q2

REPORT INFORMATION
  Report Type: 
  Country: None (occurrence: None)
  Receive Date: 20070410
  Receipt Date: 20070410
  Transmission Date: 20071010
  Serious: Yes (Hospitalization)
  Sender: FDA-Public Use
  Company Number: None

PATIENT
  Sex: Female
  Weight: 85.9 kg

DRUGS (12)
  1. IBANDRONATE SODIUM (BONIVA) [Suspect]
     Dosage: 1400 MG
  2. BUSPIRONE HCL [Concomitant]
  3. COMPAZINE [Concomitant]
  4. COUMADIN [Concomitant]
  5. FEXOFENADINE [Concomitant]
  6. FUROSEMIDE [Concomitant]
  7. LEVOTHYROXINE SODIUM [Concomitant]
  8. LEXAPRO [Concomitant]
  9. LISINOPRIL [Concomitant]
  10. LORAZEPAM [Concomitant]
  11. LOVASTATIN [Concomitant]
  12. PROTONIX [Concomitant]

REACTIONS (1)
  - OESOPHAGITIS ULCERATIVE [None]
